FAERS Safety Report 13048582 (Version 1)
Quarter: 2016Q4

REPORT INFORMATION
  Report Type: Spontaneous
  Country: US (occurrence: US)
  Receive Date: 20161221
  Receipt Date: 20161221
  Transmission Date: 20170207
  Serious: No
  Sender: FDA-Public Use
  Company Number: US-BIOGEN-2016BI00331182

PATIENT
  Sex: Male

DRUGS (1)
  1. TECFIDERA [Suspect]
     Active Substance: DIMETHYL FUMARATE
     Indication: MULTIPLE SCLEROSIS
     Dosage: MAINTENANCE DOSE
     Route: 048
     Dates: start: 20150427

REACTIONS (4)
  - Gait disturbance [Not Recovered/Not Resolved]
  - Bradykinesia [Not Recovered/Not Resolved]
  - Sedation [Recovered/Resolved]
  - Fall [Recovered/Resolved]
